FAERS Safety Report 14355994 (Version 1)
Quarter: 2018Q1

REPORT INFORMATION
  Report Type: Spontaneous
  Country: US (occurrence: US)
  Receive Date: 20180105
  Receipt Date: 20180105
  Transmission Date: 20180509
  Serious: Yes (Disabling, Other)
  Sender: FDA-Public Use
  Company Number: US-SA-2015SA068399

PATIENT
  Age: 61 Year
  Sex: Female

DRUGS (4)
  1. SOLOSTAR [Suspect]
     Active Substance: DEVICE
     Indication: TYPE 1 DIABETES MELLITUS
     Dates: start: 2009
  2. SOLOSTAR [Suspect]
     Active Substance: DEVICE
  3. LANTUS SOLOSTAR [Suspect]
     Active Substance: INSULIN GLARGINE
     Indication: TYPE 1 DIABETES MELLITUS
     Dosage: DOSE:22 UNIT(S)
     Route: 065
     Dates: start: 2009
  4. APIDRA SOLOSTAR [Suspect]
     Active Substance: INSULIN GLULISINE
     Route: 058

REACTIONS (6)
  - Product physical issue [Unknown]
  - Disability [Unknown]
  - Nerve injury [Unknown]
  - Back disorder [Unknown]
  - Sensory loss [Unknown]
  - Blood glucose increased [Unknown]
